FAERS Safety Report 9827145 (Version 1)
Quarter: 2014Q1

REPORT INFORMATION
  Report Type: Spontaneous
  Country: US (occurrence: US)
  Receive Date: 20140117
  Receipt Date: 20140117
  Transmission Date: 20141002
  Serious: No
  Sender: FDA-Public Use
  Company Number: US-GLAXOSMITHKLINE-A1039936A

PATIENT
  Age: 57 Year
  Sex: Female

DRUGS (1)
  1. PROMACTA [Suspect]
     Indication: THROMBOCYTOPENIA
     Dosage: 12.5MG PER DAY
     Route: 048
     Dates: start: 20130314

REACTIONS (1)
  - Platelet count decreased [Recovered/Resolved]
